FAERS Safety Report 5832840-6 (Version None)
Quarter: 2008Q3

REPORT INFORMATION
  Report Type: 
  Country: None (occurrence: None)
  Receive Date: 20080804
  Receipt Date: 20080723
  Transmission Date: 20090109
  Serious: Yes (Other)
  Sender: FDA-Public Use
  Company Number: US-PFIZER INC-2008062278

PATIENT
  Sex: Female

DRUGS (1)
  1. DETROL [Suspect]

REACTIONS (4)
  - ABDOMINAL PAIN [None]
  - CONFUSIONAL STATE [None]
  - DELIRIUM [None]
  - TRANSIENT ISCHAEMIC ATTACK [None]
